FAERS Safety Report 20526665 (Version 1)
Quarter: 2022Q1

REPORT INFORMATION
  Report Type: Spontaneous
  Country: US (occurrence: None)
  Receive Date: 20220226
  Receipt Date: 20220226
  Transmission Date: 20220424
  Serious: No
  Sender: FDA-Public Use
  Company Number: None

PATIENT
  Age: 56 Year
  Sex: Female
  Weight: 90 kg

DRUGS (1)
  1. LIDOCAINE PATCH [Suspect]
     Active Substance: LIDOCAINE
     Indication: Back pain
     Dosage: OTHER QUANTITY : 3 PATCH(ES);?FREQUENCY : EVERY 12 HOURS;?
     Route: 062
     Dates: start: 20210201

REACTIONS (5)
  - Product packaging issue [None]
  - Product adhesion issue [None]
  - Device difficult to use [None]
  - Product adhesion issue [None]
  - Drug ineffective [None]

NARRATIVE: CASE EVENT DATE: 20210201
